FAERS Safety Report 8001159-X (Version None)
Quarter: 2011Q4

REPORT INFORMATION
  Report Type: 
  Country: None (occurrence: None)
  Receive Date: 20111222
  Receipt Date: 20111214
  Transmission Date: 20120403
  Serious: Yes (Disabling)
  Sender: FDA-Public Use
  Company Number: RO-GENZYME-FABR-1002295

PATIENT
  Sex: Male
  Weight: 83.5 kg

DRUGS (5)
  1. FABRAZYME [Suspect]
     Indication: FABRY'S DISEASE
     Dosage: 35 MG, Q2W
     Route: 041
     Dates: start: 20040701
  2. CARBAMAZEPINE [Concomitant]
     Indication: PRODUCT USED FOR UNKNOWN INDICATION
     Dosage: 200 MG, BID
     Dates: start: 20030101
  3. FABRAZYME [Suspect]
     Dosage: 0.75 VIALS PER MONTH
     Route: 041
     Dates: start: 20090101, end: 20091201
  4. FABRAZYME [Suspect]
     Dosage: 0.41 VIALS PER MONTH
     Route: 041
     Dates: start: 20100101, end: 20101231
  5. FABRAZYME [Suspect]
     Dosage: 0.75 VIALS PER MONTH
     Route: 041
     Dates: start: 20110101, end: 20111201

REACTIONS (1)
  - DEAFNESS NEUROSENSORY [None]
